FAERS Safety Report 13682017 (Version 1)
Quarter: 2017Q2

REPORT INFORMATION
  Report Type: Spontaneous
  Country: FR (occurrence: FR)
  Receive Date: 20170623
  Receipt Date: 20170623
  Transmission Date: 20170830
  Serious: Yes (Hospitalization)
  Sender: FDA-Public Use
  Company Number: FR-BAYER-2017-114686

PATIENT
  Age: 70 Year
  Sex: Male

DRUGS (12)
  1. STIVARGA [Suspect]
     Active Substance: REGORAFENIB
     Indication: COLON CANCER METASTATIC
     Dosage: 2 DF, DAILY
     Dates: start: 20170507, end: 20170512
  2. LANTUS [Concomitant]
     Active Substance: INSULIN GLARGINE
     Indication: TYPE 1 DIABETES MELLITUS
     Dosage: 22 IU, QD (MORNING)
     Route: 058
  3. TIMOPTOL [Concomitant]
     Active Substance: TIMOLOL
     Dosage: ONE DROP PER EYE ON MORNING
     Route: 031
  4. TADENAN [Concomitant]
     Active Substance: PYGEUM
     Dosage: MORNING
     Route: 048
  5. EUPRESSYL [Concomitant]
     Active Substance: URAPIDIL
     Dosage: MORNING AND EVENING
  6. UREA. [Concomitant]
     Active Substance: UREA
  7. COVERAM [Concomitant]
     Active Substance: AMLODIPINE\PERINDOPRIL
     Dosage: MORNING
  8. STIVARGA [Suspect]
     Active Substance: REGORAFENIB
     Indication: COLON CANCER METASTATIC
     Dosage: 3 DF, DAILY
     Dates: start: 20170513, end: 20170524
  9. KARDEGIC [Concomitant]
     Active Substance: ASPIRIN LYSINE
     Dosage: 75 MG, QD (MORNING)
     Route: 048
  10. TAHOR [Concomitant]
     Active Substance: ATORVASTATIN CALCIUM
     Dosage: MORNING
  11. ESIDREX [Concomitant]
     Active Substance: HYDROCHLOROTHIAZIDE
     Indication: HYPERTENSION
     Dosage: 25 MG, QD (MORNING)
     Route: 048
  12. HUMALOG [Concomitant]
     Active Substance: INSULIN LISPRO
     Indication: TYPE 1 DIABETES MELLITUS
     Dosage: WHEN NEEDED
     Route: 017

REACTIONS (5)
  - Genital rash [Recovering/Resolving]
  - Dermatitis bullous [Recovering/Resolving]
  - Deep vein thrombosis [Recovering/Resolving]
  - Palmar-plantar erythrodysaesthesia syndrome [Recovering/Resolving]
  - Decreased appetite [Recovering/Resolving]

NARRATIVE: CASE EVENT DATE: 201705
